FAERS Safety Report 6175178-2 (Version None)
Quarter: 2009Q2

REPORT INFORMATION
  Report Type: 
  Country: None (occurrence: None)
  Receive Date: 20090430
  Receipt Date: 20090120
  Transmission Date: 20091009
  Serious: No
  Sender: FDA-Public Use
  Company Number: US-ASTRAZENECA-2009UW01876

PATIENT
  Sex: Female

DRUGS (1)
  1. NEXIUM [Suspect]
     Dosage: UNKNOWN
     Route: 048

REACTIONS (5)
  - DISCOMFORT [None]
  - INSOMNIA [None]
  - OESOPHAGEAL PAIN [None]
  - REGURGITATION [None]
  - VOMITING [None]
